FAERS Safety Report 13297757 (Version 2)
Quarter: 2017Q2

REPORT INFORMATION
  Report Type: Spontaneous
  Country: US (occurrence: US)
  Receive Date: 20170306
  Receipt Date: 20170418
  Transmission Date: 20170830
  Serious: No
  Sender: FDA-Public Use
  Company Number: US-PFIZER INC-2017092993

PATIENT
  Age: 64 Year
  Sex: Female
  Weight: 68.27 kg

DRUGS (3)
  1. ADVIL ALLERGY AND CONGESTION RELIEF [Suspect]
     Active Substance: CHLORPHENIRAMINE MALEATE\IBUPROFEN\PHENYLEPHRINE HYDROCHLORIDE
     Dosage: UNK, DAILY (ONE OR TWO PILL A DAY)
     Route: 048
  2. ADVIL ALLERGY AND CONGESTION RELIEF [Suspect]
     Active Substance: CHLORPHENIRAMINE MALEATE\IBUPROFEN\PHENYLEPHRINE HYDROCHLORIDE
     Indication: HYPERSENSITIVITY
     Dosage: 1 DF, EVERY 4 HRS (ONE PILL, ONE EVERY FOUR HOURS)
     Route: 048
     Dates: start: 2016
  3. LEVOTHYROXINE. [Concomitant]
     Active Substance: LEVOTHYROXINE
     Indication: THYROID DISORDER
     Dosage: ONCE A DAY
     Route: 048

REACTIONS (4)
  - Laceration [Recovered/Resolved]
  - Product blister packaging issue [Recovered/Resolved]
  - Intentional product use issue [Unknown]
  - Drug effect prolonged [Unknown]

NARRATIVE: CASE EVENT DATE: 201603
